FAERS Safety Report 8188361-1 (Version None)
Quarter: 2012Q1

REPORT INFORMATION
  Report Type: 
  Country: None (occurrence: None)
  Receive Date: 20120306
  Receipt Date: 20120224
  Transmission Date: 20120608
  Serious: Yes (Other)
  Sender: FDA-Public Use
  Company Number: JP-ASTRAZENECA-2012SE12535

PATIENT
  Sex: Female

DRUGS (4)
  1. NIZORAL [Concomitant]
  2. MEILAX [Suspect]
     Route: 048
  3. XALATAN [Concomitant]
     Route: 001
  4. SEROQUEL [Suspect]
     Route: 048

REACTIONS (1)
  - LOSS OF CONSCIOUSNESS [None]
